FAERS Safety Report 4748238-8 (Version None)
Quarter: 2005Q3

REPORT INFORMATION
  Report Type: 
  Country: None (occurrence: None)
  Receive Date: 20050818
  Receipt Date: 20031009
  Transmission Date: 20060218
  Serious: Yes (Hospitalization)
  Sender: FDA-Public Use
  Company Number: PHRM2003FR02678

PATIENT
  Age: 22 Year
  Sex: Male

DRUGS (1)
  1. LAMISIL [Suspect]
     Indication: NAIL TINEA
     Dosage: 250 MG, QD
     Route: 048
     Dates: start: 20030115, end: 20030904

REACTIONS (8)
  - CONJUNCTIVAL DISORDER [None]
  - CORNEAL OEDEMA [None]
  - EYE PAIN [None]
  - IRIDOCYCLITIS [None]
  - OTORRHOEA [None]
  - UVEITIS [None]
  - VISION BLURRED [None]
  - VISUAL ACUITY REDUCED [None]
